FAERS Safety Report 4512830-6 (Version None)
Quarter: 2004Q4

REPORT INFORMATION
  Report Type: 
  Country: None (occurrence: None)
  Receive Date: 20041130
  Receipt Date: 20041118
  Transmission Date: 20050328
  Serious: Yes (Other)
  Sender: FDA-Public Use
  Company Number: US-JNJFOC-20040901264

PATIENT
  Sex: Female
  Weight: 77.11 kg

DRUGS (6)
  1. REMICADE [Suspect]
     Indication: CROHN'S DISEASE
     Route: 042
  2. ORTHO TRI-CYCLEN [Concomitant]
  3. ALLERX [Concomitant]
  4. ALLERX [Concomitant]
  5. ALLERX [Concomitant]
  6. ADVIL [Concomitant]

REACTIONS (3)
  - PAIN [None]
  - SUNBURN [None]
  - SWELLING [None]
